FAERS Safety Report 9301266 (Version 1)
Quarter: 2013Q2

REPORT INFORMATION
  Report Type: Spontaneous
  Country: GR (occurrence: GR)
  Receive Date: 20130521
  Receipt Date: 20130521
  Transmission Date: 20140414
  Serious: Yes (Congenital Anomaly, Other)
  Sender: FDA-Public Use
  Company Number: GR-GLAXOSMITHKLINE-B0892254A

PATIENT
  Sex: 0

DRUGS (1)
  1. CEFUROXIM [Suspect]
     Indication: PYREXIA
     Route: 065

REACTIONS (14)
  - Congenital infection [Unknown]
  - Listeriosis [Unknown]
  - Apnoea [Unknown]
  - Acute respiratory distress syndrome [Unknown]
  - Convulsion [Unknown]
  - Anaemia [Unknown]
  - Neutropenia [Unknown]
  - Thrombocytopenia [Unknown]
  - C-reactive protein increased [Unknown]
  - Cerebral haemorrhage [Unknown]
  - Cerebral ventricle dilatation [Unknown]
  - Periventricular leukomalacia [Unknown]
  - Foetal exposure during pregnancy [Unknown]
  - Premature baby [Unknown]
